FAERS Safety Report 8465713 (Version 7)
Quarter: 2012Q4

REPORT INFORMATION
  Report Type: Report from Study
  Country: BR (occurrence: BR)
  Receive Date: 20120319
  Receipt Date: 20121022
  Transmission Date: 20130627
  Serious: Yes (Death, Hospitalization)
  Sender: FDA-Public Use
  Company Number: BR-NOVOPROD-346675

PATIENT
  Age: 59 Year
  Sex: Female
  Weight: 71 kg

DRUGS (10)
  1. LIRAGLUTIDE FLEXPEN [Suspect]
     Indication: TYPE 2 DIABETES MELLITUS
     Dosage: 1.8 mg, qd
     Route: 058
     Dates: start: 20110909, end: 20111217
  2. AMARYL [Concomitant]
     Dosage: 2 mg, bid
     Route: 048
  3. MORPHINE [Concomitant]
     Dosage: UNK
     Route: 058
  4. DIMETHICONE [Concomitant]
     Dosage: UNK
  5. BROMAZEPAM [Concomitant]
     Dosage: 3 mg, qd
  6. L-THYROXIN [Concomitant]
     Dosage: 50 mcg, qd
  7. ESOMEPRAZOLE [Concomitant]
     Dosage: 40 mg, bid
  8. INSULIN HUMAN [Concomitant]
     Dosage: 100 UNK, prn
     Route: 058
  9. AMITRIPTYLINE [Concomitant]
     Dosage: 25 mg, bid
  10. METFORMIN [Concomitant]
     Dosage: 500 mg, UNK
     Route: 048

REACTIONS (1)
  - Pancreatic carcinoma [Fatal]
